FAERS Safety Report 24116008 (Version 1)
Quarter: 2024Q3

REPORT INFORMATION
  Report Type: Report from Study
  Country: IT (occurrence: IT)
  Receive Date: 20240722
  Receipt Date: 20240722
  Transmission Date: 20241017
  Serious: Yes (Other)
  Sender: UCB
  Company Number: IT-UCBSA-2024036005

PATIENT
  Age: 49 Year
  Sex: Male

DRUGS (2)
  1. LEVETIRACETAM [Interacting]
     Active Substance: LEVETIRACETAM
     Indication: Epilepsy
     Dosage: 500 MILLIGRAM, 2X/DAY (BID)
  2. RIVAROXABAN [Interacting]
     Active Substance: RIVAROXABAN
     Indication: Anticoagulant therapy
     Dosage: 20 MILLIGRAM, ONCE DAILY (QD)
     Route: 048

REACTIONS (2)
  - Ischaemic stroke [Unknown]
  - Drug interaction [Unknown]
